FAERS Safety Report 4568054-X (Version None)
Quarter: 2005Q1

REPORT INFORMATION
  Report Type: 
  Country: None (occurrence: None)
  Receive Date: 20050131
  Receipt Date: 20050119
  Transmission Date: 20050727
  Serious: Yes (Hospitalization)
  Sender: FDA-Public Use
  Company Number: 2005015941

PATIENT
  Age: 72 Year
  Sex: Male

DRUGS (10)
  1. CABERGOLINE [Suspect]
     Indication: PARKINSON'S DISEASE
     Dosage: 8 MG (8 MG, 1 IN 1 D), ORAL
     Route: 048
     Dates: start: 20010101, end: 20030905
  2. CLOMETHIAZOLE EDISILATE (CLOMETHIAZOLE EDISILATE) [Concomitant]
  3. ACETAMINOPHEN [Concomitant]
  4. OXYCODONE HCL [Concomitant]
  5. CITALOPRAM HYDROBROMIDE [Concomitant]
  6. FERROUS SULFATE TAB [Concomitant]
  7. METOLAZONE [Concomitant]
  8. FUROSEMIDE (FUROSEMIDE) [Concomitant]
  9. CALCIUM CARBONATE (CALCIUM CARBONATE) [Concomitant]
  10. ALLOPURINOL [Concomitant]

REACTIONS (4)
  - LUNG INFILTRATION [None]
  - PLEURAL EFFUSION [None]
  - PLEURAL FIBROSIS [None]
  - RIGHT VENTRICULAR FAILURE [None]
